FAERS Safety Report 5918349-X (Version None)
Quarter: 2008Q4

REPORT INFORMATION
  Report Type: 
  Country: None (occurrence: None)
  Receive Date: 20081010
  Receipt Date: 20080630
  Transmission Date: 20090506
  Serious: Yes (Other)
  Sender: FDA-Public Use
  Company Number: 2008US001716

PATIENT
  Age: 51 Year
  Sex: Female

DRUGS (4)
  1. PROGRAF [Suspect]
     Indication: RENAL TRANSPLANT
  2. LEFLUNOMIDE [Suspect]
     Indication: POLYOMAVIRUS-ASSOCIATED NEPHROPATHY
  3. THYMOGLOBULIN [Concomitant]
  4. MYCOPHENOLATE MOFETIL [Concomitant]

REACTIONS (3)
  - KIDNEY TRANSPLANT REJECTION [None]
  - POLYOMAVIRUS-ASSOCIATED NEPHROPATHY [None]
  - THROMBOTIC MICROANGIOPATHY [None]
